FAERS Safety Report 18891942 (Version 5)
Quarter: 2021Q3

REPORT INFORMATION
  Report Type: Spontaneous
  Country: US (occurrence: US)
  Receive Date: 20210215
  Receipt Date: 20210919
  Transmission Date: 20211014
  Serious: No
  Sender: FDA-Public Use
  Company Number: US-SA-2021SA050997

PATIENT
  Sex: Female

DRUGS (2)
  1. DUPIXENT [Suspect]
     Active Substance: DUPILUMAB
     Indication: DERMATITIS ATOPIC
     Dosage: 300 MG, QOW
     Route: 058
     Dates: start: 202007
  2. MULTIVITAMINS [VITAMINS NOS] [Concomitant]
     Active Substance: VITAMINS

REACTIONS (16)
  - Pain [Unknown]
  - Arthropathy [Unknown]
  - Myalgia [Unknown]
  - Arthralgia [Unknown]
  - Injection site erythema [Unknown]
  - Dry skin [Unknown]
  - Pruritus [Unknown]
  - Blood blister [Not Recovered/Not Resolved]
  - Rash [Unknown]
  - Therapeutic response decreased [Not Recovered/Not Resolved]
  - Hypersensitivity [Unknown]
  - Headache [Unknown]
  - Mobility decreased [Unknown]
  - Hypoaesthesia [Unknown]
  - Pain in extremity [Unknown]
  - Sleep disorder [Unknown]
